FAERS Safety Report 21681277 (Version 4)
Quarter: 2023Q1

REPORT INFORMATION
  Report Type: Report from Study
  Country: CA (occurrence: CA)
  Receive Date: 20221205
  Receipt Date: 20230217
  Transmission Date: 20230417
  Serious: Yes (Hospitalization)
  Sender: FDA-Public Use
  Company Number: CA-JNJFOC-20221204083

PATIENT
  Age: 17 Year
  Sex: Female
  Weight: 51 kg

DRUGS (4)
  1. REMICADE [Suspect]
     Active Substance: INFLIXIMAB
     Indication: Crohn^s disease
     Dosage: DOSE INCREASED?THERAPY START DATE ALSO REPORTED AS 09/DEC/2021.
     Route: 041
     Dates: start: 20211101
  2. REMICADE [Suspect]
     Active Substance: INFLIXIMAB
     Route: 041
  3. REMICADE [Suspect]
     Active Substance: INFLIXIMAB
     Dosage: REINDUCTION
     Route: 041
  4. REMICADE [Suspect]
     Active Substance: INFLIXIMAB
     Dosage: REINDUCTION WEEK 2 AND 6 AND THEN Q 8 WEEKS AT 500 MG IV
     Route: 041

REACTIONS (5)
  - COVID-19 [Recovered/Resolved]
  - Anaemia [Unknown]
  - Crohn^s disease [Unknown]
  - Incorrect drug administration rate [Unknown]
  - Off label use [Unknown]

NARRATIVE: CASE EVENT DATE: 20221201
